FAERS Safety Report 8173358-8 (Version None)
Quarter: 2012Q1

REPORT INFORMATION
  Report Type: 
  Country: None (occurrence: None)
  Receive Date: 20120104
  Receipt Date: 20111026
  Transmission Date: 20120608
  Serious: No
  Sender: FDA-Public Use
  Company Number: 2011HGS-002692

PATIENT
  Sex: Female
  Weight: 83.0083 kg

DRUGS (8)
  1. CALCIUM (CALCIUM) (CALCIUM) [Concomitant]
  2. XANAX [Concomitant]
  3. REQUIP (ROPINIROLE HYDROCHLORIDE) (ROPINIROLE HYDROCHLORIDE) [Concomitant]
  4. PROZAC (FLUOXETINE HYDROCHLORIDE) (FLUOXETINE HYDROCHLORIDE0 [Concomitant]
  5. ATENOLOL [Concomitant]
  6. TRAZODONE (TRAZODONE) (TRAZODONE) [Concomitant]
  7. PLAQUENIL (HYDROCXYCHLOROQUINE SULFATE) (HYDROXYCHLOROQUINE SULFATE) [Concomitant]
  8. BENLYSTA [Suspect]
     Indication: SYSTEMIC LUPUS ERYTHEMATOSUS
     Dosage: EVERY 2 WEEKS X 3 THEN EVERY 4 WEEKS, INTRAVENOUS DRIP
     Route: 041
     Dates: start: 20110728

REACTIONS (3)
  - MIGRAINE [None]
  - BLOOD GLUCOSE INCREASED [None]
  - INSOMNIA [None]
